FAERS Safety Report 22280620 (Version 1)
Quarter: 2023Q2

REPORT INFORMATION
  Report Type: Spontaneous
  Country: US (occurrence: None)
  Receive Date: 20230502
  Receipt Date: 20230502
  Transmission Date: 20230721
  Serious: No
  Sender: FDA-Public Use
  Company Number: None

PATIENT
  Age: 26 Year
  Sex: Female

DRUGS (1)
  1. METHYLPHENIDATE HYDROCHLORIDE [Suspect]
     Active Substance: METHYLPHENIDATE HYDROCHLORIDE
     Indication: Attention deficit hyperactivity disorder
     Dosage: OTHER QUANTITY : 1 TABLET(S);?
     Route: 048
     Dates: start: 20230201

REACTIONS (9)
  - Constipation [None]
  - Headache [None]
  - Panic reaction [None]
  - Anxiety [None]
  - Tachyphrenia [None]
  - Disturbance in attention [None]
  - Apathy [None]
  - Feeling abnormal [None]
  - Product substitution issue [None]
